FAERS Safety Report 7335406-4 (Version None)
Quarter: 2011Q1

REPORT INFORMATION
  Report Type: 
  Country: None (occurrence: None)
  Receive Date: 20110307
  Receipt Date: 20110222
  Transmission Date: 20110831
  Serious: Yes (Other)
  Sender: FDA-Public Use
  Company Number: PHHY2011FR15636

PATIENT
  Age: 67 Year
  Sex: Male

DRUGS (1)
  1. PACLITAXEL [Suspect]
     Indication: METASTASES TO LIVER

REACTIONS (12)
  - THROMBOCYTOPENIA [None]
  - PNEUMOPERITONEUM [None]
  - C-REACTIVE PROTEIN INCREASED [None]
  - PNEUMATOSIS INTESTINALIS [None]
  - BODY TEMPERATURE INCREASED [None]
  - HEART RATE INCREASED [None]
  - NEUTROPENIA [None]
  - ABDOMINAL PAIN [None]
  - VOMITING [None]
  - PANCYTOPENIA [None]
  - ANAEMIA [None]
  - BLOOD PRESSURE INCREASED [None]
